FAERS Safety Report 21183777 (Version 1)
Quarter: 2022Q3

REPORT INFORMATION
  Report Type: Spontaneous
  Country: US (occurrence: US)
  Receive Date: 20220808
  Receipt Date: 20220808
  Transmission Date: 20221027
  Serious: Yes (Other)
  Sender: FDA-Public Use
  Company Number: US-SA-SAC20220804001456

PATIENT
  Age: 52 Year

DRUGS (1)
  1. ZANTAC [Suspect]
     Active Substance: RANITIDINE HYDROCHLORIDE
     Indication: Product used for unknown indication
     Dosage: 25 MG, QD
     Dates: start: 200508, end: 200808

REACTIONS (1)
  - Breast cancer stage II [Recovered/Resolved]

NARRATIVE: CASE EVENT DATE: 20080523
